FAERS Safety Report 9729058 (Version 1)
Quarter: 2013Q4

REPORT INFORMATION
  Report Type: Spontaneous
  Country: US (occurrence: US)
  Receive Date: 20131204
  Receipt Date: 20131204
  Transmission Date: 20140711
  Serious: Yes (Hospitalization)
  Sender: FDA-Public Use
  Company Number: PHHY2013US137022

PATIENT
  Age: 65 Year
  Sex: Male

DRUGS (1)
  1. SULFAMETHOXAZOLE+TRIMETHOPRIM [Suspect]
     Indication: OTITIS MEDIA

REACTIONS (9)
  - Weight decreased [Recovering/Resolving]
  - Pancreatitis [Recovering/Resolving]
  - Hepatitis [Recovering/Resolving]
  - Rash macular [Recovering/Resolving]
  - Jaundice [Recovering/Resolving]
  - Pyrexia [Recovering/Resolving]
  - Vomiting [Recovering/Resolving]
  - Nausea [Recovering/Resolving]
  - Abdominal pain [Recovering/Resolving]
